FAERS Safety Report 8611078-3 (Version None)
Quarter: 2012Q3

REPORT INFORMATION
  Report Type: 
  Country: None (occurrence: None)
  Receive Date: 20120822
  Receipt Date: 20120813
  Transmission Date: 20120928
  Serious: Yes (Death, Hospitalization)
  Sender: FDA-Public Use
  Company Number: FR-MILLENNIUM PHARMACEUTICALS, INC.-2012-05731

PATIENT

DRUGS (27)
  1. BENDAMUSTINE HYDROCHLORIDE [Suspect]
     Indication: MANTLE CELL LYMPHOMA
     Dosage: 180 MG, QD
     Route: 042
     Dates: start: 20120529, end: 20120530
  2. ROCEPHIN [Concomitant]
  3. GLUCOPHAGE [Concomitant]
  4. FASTURTEC [Concomitant]
     Indication: TUMOUR LYSIS SYNDROME
  5. LASIX [Concomitant]
     Dosage: 80 MG, UNK
  6. DUPHALAC [Concomitant]
  7. COLCHICINE [Concomitant]
     Dosage: 1 UNK, UNK
  8. ACTRAPID                           /00030501/ [Concomitant]
     Route: 042
  9. MABTHERA [Suspect]
     Indication: MANTLE CELL LYMPHOMA
     Dosage: 750 MG, UNK
     Route: 042
     Dates: start: 20120529, end: 20120529
  10. XANAX [Concomitant]
     Indication: ANXIETY
  11. VENTOLIN [Concomitant]
  12. ALBUMIN [Concomitant]
  13. ATARAX [Concomitant]
     Dosage: 100 MG, UNK
  14. NEXIUM [Concomitant]
     Dosage: 20 MG, UNK
  15. ZELITREX                           /01269701/ [Concomitant]
  16. TRANXENE [Concomitant]
  17. VELCADE [Suspect]
     Indication: MANTLE CELL LYMPHOMA
     Dosage: 2.6 MG, QD
     Route: 058
     Dates: start: 20120529, end: 20120608
  18. BACTRIM [Concomitant]
  19. IMOVANE [Concomitant]
  20. MAGNESIUM SULFATE [Concomitant]
  21. RAMIPRIL [Concomitant]
  22. DEXAMETHASONE [Suspect]
     Indication: MANTLE CELL LYMPHOMA
     Dosage: 40 MG, UNK
     Route: 065
  23. CITALOPRAM HYDROBROMIDE [Concomitant]
     Dosage: 20 MG, UNK
  24. FOLIC ACID [Concomitant]
     Dosage: 5 MG, UNK
  25. OXAZEPAM [Concomitant]
  26. PENTOXIFYLLINE [Concomitant]
  27. LASIX [Concomitant]

REACTIONS (1)
  - LUNG DISORDER [None]
